FAERS Safety Report 25461873 (Version 1)
Quarter: 2025Q2

REPORT INFORMATION
  Report Type: Spontaneous
  Country: AU (occurrence: AU)
  Receive Date: 20250620
  Receipt Date: 20250620
  Transmission Date: 20250717
  Serious: Yes (Hospitalization)
  Sender: SANOFI AVENTIS
  Company Number: AU-SA-2025SA175131

PATIENT
  Age: 68 Year
  Sex: Female

DRUGS (9)
  1. GLYBURIDE [Suspect]
     Active Substance: GLYBURIDE
     Dosage: 2.5 MG, QD
     Dates: start: 20230309, end: 20230518
  2. GLYBURIDE [Suspect]
     Active Substance: GLYBURIDE
     Route: 048
     Dates: start: 20230518
  3. GLICLAZIDE [Suspect]
     Active Substance: GLICLAZIDE
     Dates: start: 202305
  4. GLICLAZIDE [Suspect]
     Active Substance: GLICLAZIDE
     Route: 048
  5. DAPAGLIFLOZIN PROPANEDIOL [Concomitant]
     Active Substance: DAPAGLIFLOZIN PROPANEDIOL
     Dosage: 10 MG, QD
     Route: 048
  6. DULAGLUTIDE [Concomitant]
     Active Substance: DULAGLUTIDE
     Dosage: 1.5 MG, QW
     Route: 058
     Dates: start: 20230420, end: 20230511
  7. PIOGLITAZONE HYDROCHLORIDE [Concomitant]
     Active Substance: PIOGLITAZONE HYDROCHLORIDE
     Dosage: 30 MG, QD
     Dates: start: 20230502
  8. SEMAGLUTIDE [Concomitant]
     Active Substance: SEMAGLUTIDE
     Dosage: 1 MG, QW
     Route: 058
     Dates: start: 20230605
  9. SITAGLIPTIN [Concomitant]
     Active Substance: SITAGLIPTIN
     Dosage: 100 MG, QD
     Route: 048

REACTIONS (2)
  - Viral infection [Unknown]
  - Hypoglycaemia [Unknown]
